FAERS Safety Report 6129688-4 (Version None)
Quarter: 2009Q1

REPORT INFORMATION
  Report Type: 
  Country: None (occurrence: None)
  Receive Date: 20090323
  Receipt Date: 20090323
  Transmission Date: 20090719
  Serious: Yes (Other)
  Sender: FDA-Public Use
  Company Number: None

PATIENT
  Age: 1 Year
  Sex: Male

DRUGS (1)
  1. BENEFIBER W/ WHEAT DEXTRIN (NCH) (WHEAT DEXTRIN0 POWDER [Suspect]

REACTIONS (6)
  - BURNING SENSATION [None]
  - CRYING [None]
  - DERMATITIS DIAPER [None]
  - DRUG DEPENDENCE [None]
  - OVERDOSE [None]
  - PAINFUL DEFAECATION [None]
